FAERS Safety Report 8015780-6 (Version None)
Quarter: 2011Q4

REPORT INFORMATION
  Report Type: 
  Country: None (occurrence: None)
  Receive Date: 20111230
  Receipt Date: 20111215
  Transmission Date: 20120403
  Serious: Yes (Hospitalization)
  Sender: FDA-Public Use
  Company Number: DE-ROCHE-1023336

PATIENT
  Sex: Female

DRUGS (8)
  1. CARBOPLATIN [Suspect]
     Indication: BREAST CANCER
     Dosage: CYCLIC DOSING. LAST DOSE PRIOR TO SAE: 30/NOV/2011
     Route: 042
     Dates: start: 20111020
  2. HERCEPTIN [Suspect]
     Indication: BREAST CANCER
     Dosage: CYCLIC DOSING. LAST DOSE PRIOR TO SAE: 23/NOV/2011
     Route: 042
     Dates: start: 20111020, end: 20111207
  3. LAPATINIB [Suspect]
     Indication: BREAST CANCER
     Route: 048
     Dates: start: 20111020, end: 20111207
  4. PACLITAXEL [Suspect]
     Indication: BREAST CANCER
     Dosage: CYCLIC DOSING. LAST DOSE PRIOR TO SAE: 30/NOV/2011
     Route: 042
     Dates: start: 20111020, end: 20111207
  5. DOXORUBICIN HCL [Suspect]
     Indication: BREAST CANCER
     Dosage: CYCLIC DOSING. LAST DOSE PRIOR TO SAE: 30/NOV/2011
     Route: 042
     Dates: start: 20111020, end: 20111207
  6. LOPERAMIDE HCL [Concomitant]
     Dates: start: 20111103
  7. FORTECORTIN (GERMANY) [Concomitant]
     Dates: start: 20111130
  8. METOCLOPRAMIDE HYDROCHLORIDE [Concomitant]
     Dates: start: 20111103

REACTIONS (8)
  - DIARRHOEA [None]
  - GENERAL PHYSICAL HEALTH DETERIORATION [None]
  - NAUSEA [None]
  - WEIGHT DECREASED [None]
  - DYSPNOEA [None]
  - DIZZINESS [None]
  - FATIGUE [None]
  - VOMITING [None]
